FAERS Safety Report 8192385-8 (Version None)
Quarter: 2012Q1

REPORT INFORMATION
  Report Type: 
  Country: None (occurrence: None)
  Receive Date: 20120308
  Receipt Date: 20120302
  Transmission Date: 20120608
  Serious: Yes (Hospitalization)
  Sender: FDA-Public Use
  Company Number: US-BIOGENIDEC-2011BI022362

PATIENT
  Age: 65 Year
  Sex: Female

DRUGS (2)
  1. TYSABRI [Suspect]
     Indication: MULTIPLE SCLEROSIS
     Route: 042
     Dates: start: 20080114, end: 20110401
  2. TYSABRI [Suspect]
     Route: 042
     Dates: start: 20111201

REACTIONS (4)
  - VERTEBRAL COLUMN MASS [None]
  - LIMB INJURY [None]
  - LOCALISED INFECTION [None]
  - POST PROCEDURAL INFECTION [None]
